FAERS Safety Report 8859489 (Version 1)
Quarter: 2012Q4

REPORT INFORMATION
  Report Type: Spontaneous
  Country: US (occurrence: None)
  Receive Date: 20121023
  Receipt Date: 20121023
  Transmission Date: 20130627
  Serious: Yes (Other)
  Sender: FDA-Public Use
  Company Number: 2012AP003410

PATIENT
  Age: 31 Year
  Sex: Male

DRUGS (2)
  1. ALPRAZOLAM [Suspect]
     Indication: DRUG ABUSE
  2. DIAMORPHINE [Suspect]
     Indication: OPIOID ABUSE

REACTIONS (9)
  - Deafness [None]
  - Mental status changes [None]
  - Hypotension [None]
  - Tachycardia [None]
  - Renal impairment [None]
  - Troponin increased [None]
  - Transaminases increased [None]
  - Unresponsive to stimuli [None]
  - Toxicity to various agents [None]
